FAERS Safety Report 4430286-9 (Version None)
Quarter: 2004Q3

REPORT INFORMATION
  Report Type: 
  Country: None (occurrence: None)
  Receive Date: 20040817
  Receipt Date: 20040802
  Transmission Date: 20050211
  Serious: No
  Sender: FDA-Public Use
  Company Number: 04P-087-0269675-00

PATIENT
  Age: 44 Year
  Sex: Male

DRUGS (3)
  1. KALETRA [Suspect]
     Indication: HIV INFECTION
     Dosage: 6 CAPSULE, 1 IN 1 D, PER ORAL
     Route: 048
     Dates: start: 20021220, end: 20030620
  2. STAVUDINE [Concomitant]
  3. ABACAVIR SULFATE [Concomitant]

REACTIONS (5)
  - DIARRHOEA [None]
  - HEADACHE [None]
  - HEPATOCELLULAR DAMAGE [None]
  - SUBDURAL HAEMORRHAGE [None]
  - VOMITING [None]
